FAERS Safety Report 19097313 (Version 1)
Quarter: 2021Q2

REPORT INFORMATION
  Report Type: Other
  Country: US (occurrence: US)
  Receive Date: 20210406
  Receipt Date: 20210406
  Transmission Date: 20210717
  Serious: Yes (Death)
  Sender: FDA-Public Use
  Company Number: US-SERVIER-S21002906

PATIENT

DRUGS (11)
  1. TN UNSPECIFIED [VINCRISTINE SULFATE] [Suspect]
     Active Substance: VINCRISTINE SULFATE
     Indication: ACUTE LYMPHOCYTIC LEUKAEMIA
     Dosage: 1.5 MG/M?, MAXIMUM 2 MG, ON DAY 1 OF BLOCK 2 AND BLOCK 3
     Route: 042
  2. TN UNSPECIFIED [CYTARABINE] [Suspect]
     Active Substance: CYTARABINE
     Indication: ACUTE LYMPHOCYTIC LEUKAEMIA
     Dosage: 1000 MG/M?, OVER 3 HOURS EVERY 12 HOURS, DAYS 1, 2, 8, AND 9 OF BLOCK 3
     Route: 042
  3. TN UNSPECIFIED [METHOTREXATE] [Suspect]
     Active Substance: METHOTREXATE
     Dosage: UNK
     Route: 037
  4. LEUNASE [Suspect]
     Active Substance: ASPARAGINASE
     Indication: ACUTE LYMPHOCYTIC LEUKAEMIA
     Dosage: 25000 IU/M?, OVER 1 HOUR ON DAYS 2, 4, 9, 11, AND 23 OF BLOCK 3
     Route: 030
  5. LEUCOVORIN CALCIUM. [Suspect]
     Active Substance: LEUCOVORIN CALCIUM
     Indication: ACUTE LYMPHOCYTIC LEUKAEMIA
     Dosage: 15 MG/M?, EVERY 6 HOURS, ON DAYS 10 AND 11 OF BLOCK 2 AND BLOCK 3
     Route: 042
  6. TN UNSPECIFIED [ETOPOSIDE] [Suspect]
     Active Substance: ETOPOSIDE
     Indication: ACUTE LYMPHOCYTIC LEUKAEMIA
     Dosage: 100 MG/M?, ON DAYS 15?19 OF BLOCK 2
     Route: 042
  7. LEUNASE [Suspect]
     Active Substance: ASPARAGINASE
     Dosage: 25000 IU/M?, OVER 1 HOUR ON DAYS 2, 4, 9, 11, AND 23 OF BLOCK 3
     Route: 042
  8. TN UNSPECIFIED [CYCLOPHOSPHAMIDE] [Suspect]
     Active Substance: CYCLOPHOSPHAMIDE
     Indication: ACUTE LYMPHOCYTIC LEUKAEMIA
     Dosage: 440 MG/M?, ON DAYS 15?19 OF BLOCK 2
     Route: 042
  9. ONCASPAR [Suspect]
     Active Substance: PEGASPARGASE
     Indication: ACUTE LYMPHOCYTIC LEUKAEMIA
     Dosage: 2500 IU/M?, ON DAY 9 OR DAY 10 OF BLOCK 2
     Route: 042
  10. TN UNSPECIFIED [DEXAMETHASONE] [Suspect]
     Active Substance: DEXAMETHASONE
     Indication: ACUTE LYMPHOCYTIC LEUKAEMIA
     Dosage: 3 MG/M?, BID, ON DAYS 1?5 OF BLOCK 2 AND BLOCK 3
     Route: 065
  11. TN UNSPECIFIED [METHOTREXATE] [Suspect]
     Active Substance: METHOTREXATE
     Indication: ACUTE LYMPHOCYTIC LEUKAEMIA
     Dosage: 1000 MG/M?, OVER 36 HOURS, ON DAY 8 OF BLOCK 2 AND 3
     Route: 042

REACTIONS (1)
  - Infection [Fatal]

NARRATIVE: CASE EVENT DATE: 201501
